FAERS Safety Report 21210947 (Version 1)
Quarter: 2022Q3

REPORT INFORMATION
  Report Type: Report from Study
  Country: US (occurrence: US)
  Receive Date: 20220815
  Receipt Date: 20220815
  Transmission Date: 20221027
  Serious: Yes (Other)
  Sender: FDA-Public Use
  Company Number: US-SANOFI-01189289

PATIENT
  Age: 51 Year
  Sex: Female

DRUGS (10)
  1. DUPILUMAB [Suspect]
     Active Substance: DUPILUMAB
     Indication: Eosinophilic oesophagitis
     Dosage: 300 MG, QOW
     Route: 058
     Dates: start: 20220622, end: 20220801
  2. LORATADINE [Concomitant]
     Active Substance: LORATADINE
     Dosage: 1 DF, PRN
     Route: 048
  3. ASMANEX HFA [Concomitant]
     Active Substance: MOMETASONE FUROATE
     Dosage: 1 TO 2 PUFFS PUFFS BY MOUTH SWALLOWED 2 TIMES A DAY FOR 90 DAYS
     Route: 048
  4. LATUDA [Concomitant]
     Active Substance: LURASIDONE HYDROCHLORIDE
     Dosage: 1 DF, QD
     Route: 048
     Dates: start: 20190426
  5. CHLOROQUINE [Concomitant]
     Active Substance: CHLOROQUINE
     Dosage: 1 DF, QD
  6. AZELASTINE HYDROCHLORIDE [Concomitant]
     Active Substance: AZELASTINE HYDROCHLORIDE
     Dosage: 1 TO 2 SPRAY PER NOSTRIL TWICE A DAY PRN FOR 30 DAYS
  7. FAMOTIDINE [Concomitant]
     Active Substance: FAMOTIDINE
     Dosage: 1 DF, BID
     Dates: start: 20210924
  8. EPINEPHRINE [Concomitant]
     Active Substance: EPINEPHRINE
     Indication: Anaphylactic reaction
     Dosage: UNK UNK, PRN
  9. VENTOLIN HFA [Concomitant]
     Active Substance: ALBUTEROL SULFATE
     Dosage: 2 PUFF(S) EVERY 4 HOURS FOR 30 DAYS
     Dates: start: 20220325
  10. TRIAMCINOLONE ACETONIDE [Concomitant]
     Active Substance: TRIAMCINOLONE ACETONIDE
     Dosage: 1, 2 TIMES A DAY
     Route: 061
     Dates: start: 20220421

REACTIONS (2)
  - Epilepsy [Recovered/Resolved]
  - Anaphylactic reaction [Unknown]
